FAERS Safety Report 4524675-1 (Version None)
Quarter: 2004Q4

REPORT INFORMATION
  Report Type: 
  Country: None (occurrence: None)
  Receive Date: 20041211
  Receipt Date: 20030605
  Transmission Date: 20050328
  Serious: Yes (Disabling, Other)
  Sender: FDA-Public Use
  Company Number: US-MERCK-0306USA00788

PATIENT
  Age: 66 Year
  Sex: Female

DRUGS (15)
  1. VIOXX [Suspect]
     Indication: NECK PAIN
     Route: 048
     Dates: start: 19991201, end: 20000119
  2. VIOXX [Suspect]
     Route: 048
     Dates: start: 20000124
  3. CORGARD [Concomitant]
     Route: 065
     Dates: end: 20000119
  4. MAXZIDE [Concomitant]
     Route: 065
     Dates: end: 20000119
  5. MAXZIDE [Concomitant]
     Route: 065
     Dates: start: 20000124
  6. PREVACID [Concomitant]
     Route: 065
     Dates: end: 20000119
  7. PREVACID [Concomitant]
     Route: 065
     Dates: start: 20000124, end: 20031001
  8. ZOLOFT [Concomitant]
     Route: 065
     Dates: end: 20000101
  9. CELEBREX [Concomitant]
     Route: 065
     Dates: end: 19991210
  10. LIBRAX CAPSULES [Concomitant]
     Route: 065
  11. PRAVACHOL [Concomitant]
     Route: 065
  12. FLEXERIL [Concomitant]
     Route: 065
  13. DARVOCET-N 100 [Concomitant]
     Route: 065
  14. ANTINEOPLASTIC (UNSPECIFIED) [Concomitant]
     Route: 065
  15. TYLENOL W/ CODEINE NO. 3 [Concomitant]
     Indication: ARTHRALGIA
     Route: 065
     Dates: start: 20040130

REACTIONS (42)
  - ADVERSE EVENT [None]
  - ANXIETY [None]
  - AORTIC ATHEROSCLEROSIS [None]
  - ARTHRALGIA [None]
  - BLOOD PRESSURE INADEQUATELY CONTROLLED [None]
  - BREAST CANCER IN SITU [None]
  - CALCINOSIS [None]
  - CHONDROMALACIA [None]
  - CONSTIPATION [None]
  - DIARRHOEA [None]
  - EXOSTOSIS [None]
  - FALL [None]
  - FATIGUE [None]
  - FOOD POISONING [None]
  - GASTROINTESTINAL TRACT ADENOMA [None]
  - HEADACHE [None]
  - HYPERSENSITIVITY [None]
  - HYPERTENSION [None]
  - HYPOAESTHESIA [None]
  - HYPOTENSION [None]
  - INTESTINAL POLYP [None]
  - IRRITABLE BOWEL SYNDROME [None]
  - JOINT EFFUSION [None]
  - JOINT INJURY [None]
  - LOCALISED OSTEOARTHRITIS [None]
  - LOOSE BODY IN JOINT [None]
  - MEDICATION ERROR [None]
  - MENISCUS LESION [None]
  - MUCOSAL INFLAMMATION [None]
  - NERVOUSNESS [None]
  - NYSTAGMUS [None]
  - OSTEOARTHRITIS [None]
  - PAIN [None]
  - PERIPHERAL COLDNESS [None]
  - RECTAL HAEMORRHAGE [None]
  - SKIN DISCOLOURATION [None]
  - SLEEP DISORDER [None]
  - SOMNOLENCE [None]
  - TENSION [None]
  - VAGINAL DISCHARGE [None]
  - VERTIGO POSITIONAL [None]
  - VOMITING [None]
